FAERS Safety Report 10966481 (Version 2)
Quarter: 2015Q2

REPORT INFORMATION
  Report Type: Report from Study
  Country: FR (occurrence: FR)
  Receive Date: 20150330
  Receipt Date: 20150407
  Transmission Date: 20150821
  Serious: Yes (Hospitalization, Other)
  Sender: FDA-Public Use
  Company Number: FR-ROCHE-1554367

PATIENT
  Age: 58 Year
  Sex: Male
  Weight: 72 kg

DRUGS (11)
  1. VEPESIDE [Concomitant]
     Active Substance: ETOPOSIDE
     Indication: DIFFUSE LARGE B-CELL LYMPHOMA
     Dosage: DOSE AS PER PROTOCOL
     Route: 065
     Dates: start: 20140617, end: 20140805
  2. OBINUTUZUMAB [Suspect]
     Active Substance: OBINUTUZUMAB
     Indication: DIFFUSE LARGE B-CELL LYMPHOMA
     Dosage: FORM AND ROUTE OF ADMINISTRATION AND FREQUENCY OF ADMINISTRATION AS PER PROTOCOL?ADMINISTERED ON D1
     Route: 042
     Dates: start: 20140313, end: 20140805
  3. METHOTREXATE [Concomitant]
     Active Substance: METHOTREXATE
     Dosage: HIGH DOSE?DOSE AS PER PROTOCOL?2 CYCLES SPACED OUT OVER 14 DAYS
     Route: 065
     Dates: start: 20140512, end: 20140526
  4. ARACYTINE [Concomitant]
     Active Substance: CYTARABINE
     Indication: DIFFUSE LARGE B-CELL LYMPHOMA
     Dosage: DOSE AND FORM OF ADMINISTRATION AS PER PROTOCOL?DURING 4 DAYS, 2 CYCLES SPACED OUT 14 DAYS
     Route: 058
     Dates: start: 20140819, end: 20140822
  5. VINDESINE [Concomitant]
     Active Substance: VINDESINE
     Indication: DIFFUSE LARGE B-CELL LYMPHOMA
     Dosage: FORM AND ROUTE OF ADMINISTRATION, DOSE AND FREQUENCY OF ADMINISTRATION AS PER PROTOCOL.?ADMINISTERED
     Route: 042
     Dates: start: 20140313, end: 20140425
  6. BLEOMYCIN [Concomitant]
     Active Substance: BLEOMYCIN SULFATE
     Indication: DIFFUSE LARGE B-CELL LYMPHOMA
     Dosage: FORM AND ROUTE OF ADMINISTRATION, DOSE AND FREQUENCY OF ADMINISTRATION AS PER PROTOCOL.
     Route: 042
     Dates: start: 20140313, end: 20140425
  7. METHOTREXATE [Concomitant]
     Active Substance: METHOTREXATE
     Indication: DIFFUSE LARGE B-CELL LYMPHOMA
     Dosage: FORM AND ROUTE OF ADMINISTRATION, DOSE AND FREQUENCY OF ADMINISTRATION AS PER PROTOCOL.
     Route: 042
     Dates: start: 20140313, end: 20140425
  8. DOXORUBICIN [Concomitant]
     Active Substance: DOXORUBICIN
     Indication: DIFFUSE LARGE B-CELL LYMPHOMA
     Dosage: FORM AND ROUTE OF ADMINISTRATION, DOSE AND FREQUENCY OF ADMINISTRATION AS PER PROTOCOL.
     Route: 042
     Dates: start: 20140313, end: 20140425
  9. CYCLOPHOSPHAMIDE. [Concomitant]
     Active Substance: CYCLOPHOSPHAMIDE
     Indication: DIFFUSE LARGE B-CELL LYMPHOMA
     Dosage: FORM AND ROUTE OF ADMINISTRATION, DOSE AND FREQUENCY OF ADMINISTRATION AS PER PROTOCOL.
     Route: 042
     Dates: start: 20140313, end: 20140425
  10. PREDNISONE. [Concomitant]
     Active Substance: PREDNISONE
     Indication: DIFFUSE LARGE B-CELL LYMPHOMA
     Dosage: FORM AND ROUTE OF ADMINISTRATION, DOSE AND FREQUENCY OF ADMINISTRATION AS PER PROTOCOL.?ADMINISTERED
     Route: 042
     Dates: start: 20140313, end: 20140425
  11. HOLOXAN [Concomitant]
     Active Substance: IFOSFAMIDE
     Indication: DIFFUSE LARGE B-CELL LYMPHOMA
     Dosage: DOSE AS PER PROTOCOL
     Route: 065
     Dates: start: 20140617, end: 20140805

REACTIONS (1)
  - Pneumoperitoneum [Recovered/Resolved]

NARRATIVE: CASE EVENT DATE: 20150109
